FAERS Safety Report 10587465 (Version 5)
Quarter: 2015Q3

REPORT INFORMATION
  Report Type: Spontaneous
  Country: US (occurrence: US)
  Receive Date: 20141117
  Receipt Date: 20150720
  Transmission Date: 20151125
  Serious: No
  Sender: FDA-Public Use
  Company Number: US-PFIZER INC-2014313905

PATIENT
  Age: 52 Year
  Sex: Male
  Weight: 54 kg

DRUGS (2)
  1. OMEGA XL [Concomitant]
     Active Substance: DIETARY SUPPLEMENT
     Dosage: UNK
     Dates: start: 201401
  2. CHANTIX [Suspect]
     Active Substance: VARENICLINE TARTRATE
     Indication: SMOKING CESSATION THERAPY
     Dosage: 1 MG, 2X/DAY
     Dates: start: 20141019, end: 201506

REACTIONS (6)
  - Abnormal dreams [Recovered/Resolved]
  - Flatulence [Not Recovered/Not Resolved]
  - Abdominal discomfort [Recovered/Resolved]
  - Urine odour abnormal [Not Recovered/Not Resolved]
  - Retching [Unknown]
  - Disorientation [Recovered/Resolved]

NARRATIVE: CASE EVENT DATE: 201411
